FAERS Safety Report 4627963-3 (Version None)
Quarter: 2005Q2

REPORT INFORMATION
  Report Type: 
  Country: None (occurrence: None)
  Receive Date: 20050401
  Receipt Date: 20050322
  Transmission Date: 20051028
  Serious: Yes (Other)
  Sender: FDA-Public Use
  Company Number: L05-ITA-01238-01

PATIENT
  Age: 41 Year
  Sex: Male

DRUGS (3)
  1. CARBAMAZEPINE [Suspect]
  2. PHENOBARBITAL [Concomitant]
  3. BARBEXACLONE [Concomitant]

REACTIONS (1)
  - CUTANEOUS LUPUS ERYTHEMATOSUS [None]
